FAERS Safety Report 24394535 (Version 16)
Quarter: 2025Q1

REPORT INFORMATION
  Report Type: Spontaneous
  Country: GB (occurrence: GB)
  Receive Date: 20241004
  Receipt Date: 20250325
  Transmission Date: 20250408
  Serious: Yes (Other)
  Sender: ALKEM
  Company Number: GB-ALKEM LABORATORIES LIMITED-GB-ALKEM-2024-22244

PATIENT
  Age: 41 Year
  Sex: Female

DRUGS (23)
  1. AZATHIOPRINE [Suspect]
     Active Substance: AZATHIOPRINE
     Indication: Antiphospholipid syndrome
     Route: 065
  2. AZATHIOPRINE [Suspect]
     Active Substance: AZATHIOPRINE
     Route: 065
  3. AZATHIOPRINE [Suspect]
     Active Substance: AZATHIOPRINE
     Route: 065
  4. MYCOPHENOLATE MOFETIL [Suspect]
     Active Substance: MYCOPHENOLATE MOFETIL
     Indication: Autoimmune hypothyroidism
     Route: 065
  5. CYCLOSPORINE [Suspect]
     Active Substance: CYCLOSPORINE
     Indication: Product used for unknown indication
     Route: 065
  6. DAPSONE [Suspect]
     Active Substance: DAPSONE
     Indication: Antiphospholipid syndrome
     Route: 065
  7. DAPSONE [Suspect]
     Active Substance: DAPSONE
     Route: 065
  8. IMURAN [Suspect]
     Active Substance: AZATHIOPRINE
     Indication: Chronic spontaneous urticaria
     Route: 065
  9. IMURAN [Suspect]
     Active Substance: AZATHIOPRINE
     Route: 065
  10. OMALIZUMAB [Suspect]
     Active Substance: OMALIZUMAB
     Indication: Chronic spontaneous urticaria
     Dosage: 200 MILLIGRAM, QD (100 MILLIGRAM, BID)
     Route: 065
  11. OMALIZUMAB [Suspect]
     Active Substance: OMALIZUMAB
     Route: 065
  12. OMALIZUMAB [Suspect]
     Active Substance: OMALIZUMAB
     Route: 065
  13. OMALIZUMAB [Suspect]
     Active Substance: OMALIZUMAB
     Route: 065
  14. OMALIZUMAB [Suspect]
     Active Substance: OMALIZUMAB
     Route: 065
  15. OMALIZUMAB [Suspect]
     Active Substance: OMALIZUMAB
     Route: 065
  16. PREDNISOLONE [Suspect]
     Active Substance: PREDNISOLONE
     Indication: Chronic spontaneous urticaria
     Route: 065
  17. PREDNISOLONE [Suspect]
     Active Substance: PREDNISOLONE
     Indication: Autoimmune hypothyroidism
     Route: 065
  18. RITUXIMAB [Suspect]
     Active Substance: RITUXIMAB
     Indication: Product used for unknown indication
     Route: 065
  19. RITUXIMAB [Suspect]
     Active Substance: RITUXIMAB
     Route: 065
  20. SULFASALAZINE [Suspect]
     Active Substance: SULFASALAZINE
     Indication: Chronic spontaneous urticaria
     Route: 065
  21. SULFASALAZINE [Suspect]
     Active Substance: SULFASALAZINE
     Indication: Autoimmune hypothyroidism
  22. ENOXAPARIN [Concomitant]
     Active Substance: ENOXAPARIN
     Indication: Autoimmune hypothyroidism
     Route: 065
  23. ENOXAPARIN [Concomitant]
     Active Substance: ENOXAPARIN
     Indication: Antiphospholipid syndrome

REACTIONS (6)
  - Angioedema [Unknown]
  - Chronic spontaneous urticaria [Unknown]
  - Emotional distress [Unknown]
  - Mental disorder [Unknown]
  - Disease recurrence [Unknown]
  - Treatment failure [Unknown]
